FAERS Safety Report 6848676-3 (Version None)
Quarter: 2010Q3

REPORT INFORMATION
  Report Type: 
  Country: None (occurrence: None)
  Receive Date: 20100716
  Receipt Date: 20070905
  Transmission Date: 20110219
  Serious: No
  Sender: FDA-Public Use
  Company Number: US-PFIZER INC-2007074816

PATIENT
  Sex: Female
  Weight: 43.1 kg

DRUGS (4)
  1. CHANTIX [Suspect]
     Indication: SMOKING CESSATION THERAPY
     Route: 048
     Dates: start: 20070828
  2. SERTRALINE HCL [Concomitant]
     Indication: ANXIETY
  3. SERTRALINE HCL [Concomitant]
     Indication: DEPRESSION
  4. ATIVAN [Concomitant]

REACTIONS (2)
  - ABNORMAL DREAMS [None]
  - NAUSEA [None]
